FAERS Safety Report 5672243-0 (Version None)
Quarter: 2008Q1

REPORT INFORMATION
  Report Type: 
  Country: None (occurrence: None)
  Receive Date: 20080319
  Receipt Date: 20080306
  Transmission Date: 20080703
  Serious: Yes (Death)
  Sender: FDA-Public Use
  Company Number: TW-AMGEN-US268694

PATIENT
  Sex: Female
  Weight: 55 kg

DRUGS (5)
  1. ENBREL [Suspect]
     Indication: RHEUMATOID ARTHRITIS
     Route: 058
     Dates: start: 20050722, end: 20080222
  2. METHOTREXATE [Concomitant]
     Route: 065
  3. ASPIRIN [Concomitant]
     Route: 048
  4. FUROSEMIDE [Concomitant]
     Route: 065
  5. DIPYRIDAMOLE [Concomitant]
     Route: 065

REACTIONS (4)
  - ESCHERICHIA SEPSIS [None]
  - MULTI-ORGAN FAILURE [None]
  - NECROTISING FASCIITIS [None]
  - SERRATIA SEPSIS [None]
